FAERS Safety Report 6087724-8 (Version None)
Quarter: 2009Q1

REPORT INFORMATION
  Report Type: 
  Country: None (occurrence: None)
  Receive Date: 20090218
  Receipt Date: 20090218
  Transmission Date: 20090719
  Serious: Yes (Other)
  Sender: FDA-Public Use
  Company Number: None

PATIENT
  Age: 48 Year
  Sex: Male
  Weight: 111.1313 kg

DRUGS (2)
  1. ULTRAM [Suspect]
     Indication: ARTHRITIS
     Dosage: 2 ONE OR TWO PO
     Route: 048
     Dates: start: 20080401, end: 20090211
  2. ULTRAM [Suspect]
     Indication: PAIN IN EXTREMITY
     Dosage: 2 ONE OR TWO PO
     Route: 048
     Dates: start: 20080401, end: 20090211

REACTIONS (2)
  - AGGRESSION [None]
  - AMNESIA [None]
